FAERS Safety Report 9662854 (Version 2)
Quarter: 2013Q4

REPORT INFORMATION
  Report Type: Spontaneous
  Country: US (occurrence: US)
  Receive Date: 20131031
  Receipt Date: 20131031
  Transmission Date: 20140711
  Serious: Yes (Death)
  Sender: FDA-Public Use
  Company Number: US-NAPPMUNDI-USA-2011-0071130

PATIENT
  Age: 21 Year
  Sex: Female
  Weight: 51.7 kg

DRUGS (3)
  1. OXYCODONE HYDROCHLORIDE (SIMILAR TO NDA 22-272) [Suspect]
     Indication: DRUG ABUSE
  2. MORPHINE SULFATE (SIMILAR TO NDA 19-516) [Suspect]
     Indication: DRUG ABUSE
  3. ETHANOL [Suspect]
     Indication: SUBSTANCE ABUSE

REACTIONS (2)
  - Overdose [Fatal]
  - Substance abuse [Fatal]
